FAERS Safety Report 6398276-7 (Version None)
Quarter: 2009Q4

REPORT INFORMATION
  Report Type: 
  Country: None (occurrence: None)
  Receive Date: 20091013
  Receipt Date: 20091008
  Transmission Date: 20100525
  Serious: Yes (Death)
  Sender: FDA-Public Use
  Company Number: JP-AVENTIS-200911018JP

PATIENT
  Age: 66 Year
  Sex: Male
  Weight: 65.9 kg

DRUGS (25)
  1. DOCETAXEL HYDRATE [Suspect]
     Route: 041
     Dates: start: 20080821, end: 20080821
  2. PREDNISOLONE [Suspect]
     Dosage: DOSE: 2 TABLETS
     Route: 048
     Dates: start: 20080208
  3. MUCOSOLVAN [Concomitant]
  4. ATELEC [Concomitant]
  5. DIOVANE [Concomitant]
  6. SELBEX [Concomitant]
  7. SALOBEL [Concomitant]
  8. LOXONIN                            /00890701/ [Concomitant]
  9. DEPAS [Concomitant]
  10. ALSAZULENE [Concomitant]
  11. ISALON [Concomitant]
  12. BERIZYM                            /00517401/ [Concomitant]
  13. HARNAL [Concomitant]
     Dates: start: 20050613
  14. MORPHINE HYDROCHLORIDE [Concomitant]
     Dates: start: 20071101
  15. SELBEX [Concomitant]
     Dates: start: 20071101
  16. NOVAMIN                            /00013301/ [Concomitant]
     Dates: start: 20071101
  17. OPSO [Concomitant]
     Dates: start: 20071213
  18. TAKEPRON [Concomitant]
     Dates: start: 20080828
  19. OMEPRAL [Concomitant]
     Dates: start: 20080826, end: 20080827
  20. TIENAM [Concomitant]
     Dates: start: 20080827, end: 20080909
  21. GRAN [Concomitant]
     Dates: start: 20080828, end: 20080829
  22. PASIL [Concomitant]
     Dates: start: 20080828, end: 20080921
  23. FUNGUARD [Concomitant]
     Dates: start: 20080906, end: 20080921
  24. LEUPLIN [Concomitant]
     Dates: start: 20050613
  25. TOCLASE [Concomitant]
     Dates: start: 20080828

REACTIONS (2)
  - ACUTE RESPIRATORY DISTRESS SYNDROME [None]
  - WHITE BLOOD CELL COUNT DECREASED [None]
